FAERS Safety Report 5958629-5 (Version None)
Quarter: 2008Q4

REPORT INFORMATION
  Report Type: 
  Country: None (occurrence: None)
  Receive Date: 20081119
  Receipt Date: 20081112
  Transmission Date: 20090506
  Serious: Yes (Death)
  Sender: FDA-Public Use
  Company Number: US-TYCO HEALTHCARE/MALLINCKRODT-T200801680

PATIENT

DRUGS (2)
  1. HYDROCODONE BITARTRATE + ACETAMINOPHEN [Suspect]
     Indication: PAIN
     Dosage: UNK
     Dates: start: 20080901, end: 20080901
  2. OXYCODONE HCL [Suspect]
     Indication: PAIN
     Dosage: UNK
     Dates: start: 20080901, end: 20081001

REACTIONS (2)
  - CONSTIPATION [None]
  - RENAL FAILURE [None]
